FAERS Safety Report 5021193-1 (Version None)
Quarter: 2006Q2

REPORT INFORMATION
  Report Type: 
  Country: None (occurrence: None)
  Receive Date: 20060608
  Receipt Date: 20060601
  Transmission Date: 20061013
  Serious: Yes (Other)
  Sender: FDA-Public Use
  Company Number: 2006UW10569

PATIENT
  Age: 34 Year
  Sex: Female
  Weight: 78.9 kg

DRUGS (4)
  1. SEROQUEL [Suspect]
     Indication: BIPOLAR DISORDER
     Route: 048
  2. LAMICTAL [Concomitant]
  3. XANAX [Concomitant]
  4. TRAZODONE HCL [Concomitant]

REACTIONS (5)
  - CERVIX CARCINOMA [None]
  - HUNGER [None]
  - POLLAKIURIA [None]
  - SOMNOLENCE [None]
  - THIRST [None]
